FAERS Safety Report 5192863-X (Version None)
Quarter: 2006Q4

REPORT INFORMATION
  Report Type: 
  Country: None (occurrence: None)
  Receive Date: 20061228
  Receipt Date: 20060117
  Transmission Date: 20070319
  Serious: No
  Sender: FDA-Public Use
  Company Number: US-GLAXOSMITHKLINE-A0589678A

PATIENT
  Age: 68 Year
  Sex: Male

DRUGS (4)
  1. FLONASE [Suspect]
     Indication: DRUG USE FOR UNKNOWN INDICATION
     Dosage: 1SPR PER DAY
     Route: 045
     Dates: start: 20050601, end: 20060105
  2. SEREVENT [Concomitant]
  3. SPIRIVA [Concomitant]
  4. PRAVACHOL [Concomitant]

REACTIONS (1)
  - EPISTAXIS [None]
